FAERS Safety Report 24784095 (Version 1)
Quarter: 2024Q4

REPORT INFORMATION
  Report Type: Spontaneous
  Country: US (occurrence: US)
  Receive Date: 20241227
  Receipt Date: 20241227
  Transmission Date: 20250114
  Serious: Yes (Life-Threatening, Other)
  Sender: DR REDDYS
  Company Number: US-DRL-USA-LIT/USA/24/0019124

PATIENT

DRUGS (6)
  1. TACROLIMUS [Suspect]
     Active Substance: TACROLIMUS
     Indication: Graft versus host disease
  2. CYCLOPHOSPHAMIDE [Suspect]
     Active Substance: CYCLOPHOSPHAMIDE
     Indication: Graft versus host disease
     Dosage: ON DAYS + 3 AND +4
  3. MYCOPHENOLATE MOFETIL [Suspect]
     Active Substance: MYCOPHENOLATE MOFETIL
     Indication: Graft versus host disease
     Dosage: ON DAYS + 3 AND +4
  4. BUSULFAN [Suspect]
     Active Substance: BUSULFAN
     Indication: Graft versus host disease
     Dosage: DAY^S -4 AND -3
  5. FLUDARABINE [Suspect]
     Active Substance: FLUDARABINE PHOSPHATE
     Indication: Graft versus host disease
     Dosage: ON DAYS -6,-5, -4, AND -3
  6. FLUDARABINE [Suspect]
     Active Substance: FLUDARABINE PHOSPHATE
     Dosage: ON DAY^S -6 TO -2

REACTIONS (1)
  - Drug ineffective [Unknown]
